FAERS Safety Report 9854555 (Version 1)
Quarter: 2014Q1

REPORT INFORMATION
  Report Type: Spontaneous
  Country: US (occurrence: US)
  Receive Date: 20140130
  Receipt Date: 20140130
  Transmission Date: 20141002
  Serious: No
  Sender: FDA-Public Use
  Company Number: US-BIOGENIDEC-2014BI007600

PATIENT
  Age: 67 Year
  Sex: Female

DRUGS (13)
  1. TECFIDERA [Suspect]
     Indication: MULTIPLE SCLEROSIS
     Route: 048
     Dates: start: 20130617
  2. AMANTADINE HCL [Concomitant]
  3. ASPIRIN CHILDRENS [Concomitant]
  4. BENADRYL ALLERGY [Concomitant]
  5. BENICAR [Concomitant]
  6. FLUOXETINE HCL [Concomitant]
  7. OMEPRAZOLE [Concomitant]
  8. SLEEP AID [Concomitant]
  9. TRAMADOL HCL [Concomitant]
  10. TYLENOL CHILDRENS [Concomitant]
  11. VESICARE [Concomitant]
  12. VITAMIN D-400 [Concomitant]
  13. ZANAFLEX [Concomitant]

REACTIONS (2)
  - Influenza [Unknown]
  - Bronchitis [Unknown]
